FAERS Safety Report 25236512 (Version 4)
Quarter: 2025Q3

REPORT INFORMATION
  Report Type: Spontaneous
  Country: US (occurrence: US)
  Receive Date: 20250424
  Receipt Date: 20250826
  Transmission Date: 20251021
  Serious: No
  Sender: PFIZER
  Company Number: US-PFIZER INC-PV202500048975

PATIENT
  Age: 50 Year
  Sex: Female

DRUGS (2)
  1. IBRANCE [Suspect]
     Active Substance: PALBOCICLIB
  2. IBRANCE [Suspect]
     Active Substance: PALBOCICLIB

REACTIONS (6)
  - Dry skin [Unknown]
  - Fatigue [Unknown]
  - White blood cell count decreased [Unknown]
  - Nausea [Unknown]
  - Hot flush [Unknown]
  - Stomatitis [Unknown]
